FAERS Safety Report 7418502-2 (Version None)
Quarter: 2011Q2

REPORT INFORMATION
  Report Type: 
  Country: None (occurrence: None)
  Receive Date: 20110415
  Receipt Date: 20110404
  Transmission Date: 20111010
  Serious: Yes (Hospitalization)
  Sender: FDA-Public Use
  Company Number: FR-WATSON-2011-05193

PATIENT
  Age: 24 Year
  Sex: Male

DRUGS (1)
  1. ISOFLURANE [Suspect]
     Indication: ANAESTHESIA
     Dosage: UNK
     Route: 050

REACTIONS (2)
  - INTRACRANIAL PRESSURE INCREASED [None]
  - HYPERCAPNIA [None]
